FAERS Safety Report 18473697 (Version 1)
Quarter: 2020Q4

REPORT INFORMATION
  Report Type: Spontaneous
  Country: US (occurrence: US)
  Receive Date: 20201106
  Receipt Date: 20201106
  Transmission Date: 20210114
  Serious: Yes (Other)
  Sender: FDA-Public Use
  Company Number: US-PFIZER INC-2020429717

PATIENT
  Age: 57 Year
  Sex: Female

DRUGS (1)
  1. XELJANZ XR [Suspect]
     Active Substance: TOFACITINIB CITRATE
     Indication: RHEUMATOID ARTHRITIS
     Dosage: 11 MG, 1X/DAY
     Route: 048
     Dates: start: 202005, end: 20201021

REACTIONS (11)
  - Depression [Unknown]
  - Joint stiffness [Unknown]
  - Pyrexia [Unknown]
  - Chills [Unknown]
  - Dysstasia [Unknown]
  - Staphylococcal infection [Unknown]
  - Asthenia [Unknown]
  - Rash [Unknown]
  - Furuncle [Unknown]
  - Musculoskeletal stiffness [Unknown]
  - Blood cholesterol increased [Unknown]

NARRATIVE: CASE EVENT DATE: 2020
